FAERS Safety Report 8254804-8 (Version None)
Quarter: 2012Q2

REPORT INFORMATION
  Report Type: 
  Country: None (occurrence: None)
  Receive Date: 20120403
  Receipt Date: 20120329
  Transmission Date: 20120825
  Serious: Yes (Other)
  Sender: FDA-Public Use
  Company Number: PHEH2012US007023

PATIENT
  Sex: Female

DRUGS (12)
  1. ZOMETA [Suspect]
     Dosage: UNK UKN, EVERY 6 MONTHS
  2. GLYCOLAX [Concomitant]
  3. XANAX [Concomitant]
  4. MULTIVITAMIN [Concomitant]
     Route: 048
  5. ARIMIDEX [Concomitant]
  6. TRICOR [Concomitant]
  7. CALCIUM 500 [Concomitant]
  8. DIOVAN [Concomitant]
  9. RADIATION [Concomitant]
  10. ELAVIL [Concomitant]
  11. TOPROL-XL [Concomitant]
  12. PROTONIX [Concomitant]

REACTIONS (9)
  - MUSCULAR WEAKNESS [None]
  - WEIGHT INCREASED [None]
  - CONSTIPATION [None]
  - HYPOAESTHESIA [None]
  - BACK PAIN [None]
  - FATIGUE [None]
  - URINARY INCONTINENCE [None]
  - NEOPLASM PROGRESSION [None]
  - NEOPLASM MALIGNANT [None]
